FAERS Safety Report 17940695 (Version 1)
Quarter: 2020Q2

REPORT INFORMATION
  Report Type: Report from Study
  Country: CA (occurrence: CA)
  Receive Date: 20200624
  Receipt Date: 20200624
  Transmission Date: 20200714
  Serious: Yes (Hospitalization, Other)
  Sender: FDA-Public Use
  Company Number: CA-JNJFOC-20190938491

PATIENT
  Age: 21 Year
  Sex: Female
  Weight: 75.4 kg

DRUGS (2)
  1. STELARA [Suspect]
     Active Substance: USTEKINUMAB
     Indication: CROHN^S DISEASE
     Route: 058
     Dates: start: 20181121
  2. STELARA [Suspect]
     Active Substance: USTEKINUMAB
     Dosage: REINDUCTION DOSE
     Route: 042
     Dates: start: 20200617

REACTIONS (7)
  - Phlebitis deep [Not Recovered/Not Resolved]
  - Crohn^s disease [Unknown]
  - Ear pain [Unknown]
  - Product use issue [Unknown]
  - Influenza [Unknown]
  - Off label use [Unknown]
  - General physical condition abnormal [Recovered/Resolved]

NARRATIVE: CASE EVENT DATE: 20190913
